FAERS Safety Report 6511186-7 (Version None)
Quarter: 2009Q4

REPORT INFORMATION
  Report Type: 
  Country: None (occurrence: None)
  Receive Date: 20091222
  Receipt Date: 20091211
  Transmission Date: 20100525
  Serious: Yes (Other)
  Sender: FDA-Public Use
  Company Number: US-JNJCH-2009032423

PATIENT
  Age: 76 Year
  Sex: Male
  Weight: 78 kg

DRUGS (4)
  1. BENADRYL [Suspect]
     Indication: RASH
     Dosage: TEXT:UNSPECIFIED
     Route: 048
  2. BENDAMUSTINE HYDROCHLORIDE [Concomitant]
     Indication: NON-HODGKIN'S LYMPHOMA
     Dosage: TEXT:UNSPECIFIED
     Route: 065
  3. FLUNISOLIDE [Concomitant]
     Indication: RASH
     Dosage: TEXT:UNSPECIFIED
     Route: 065
  4. PREDNISONE [Concomitant]
     Indication: RASH
     Dosage: TEXT:UNSPECIFIED
     Route: 065

REACTIONS (2)
  - DRUG INEFFECTIVE FOR UNAPPROVED INDICATION [None]
  - VISUAL IMPAIRMENT [None]
